FAERS Safety Report 9725379 (Version 1)
Quarter: 2013Q4

REPORT INFORMATION
  Report Type: Spontaneous
  Country: US (occurrence: None)
  Receive Date: 20131202
  Receipt Date: 20131202
  Transmission Date: 20140711
  Serious: Yes (Life-Threatening)
  Sender: FDA-Public Use
  Company Number: None

PATIENT
  Age: 27 Year
  Sex: Male
  Weight: 111.59 kg

DRUGS (2)
  1. ZANTAC [Suspect]
     Indication: GASTROOESOPHAGEAL REFLUX DISEASE
     Dates: start: 20130806, end: 20131113
  2. ZANTAC [Suspect]
     Indication: PROPHYLAXIS
     Dates: start: 20130806, end: 20131113

REACTIONS (20)
  - Dyspnoea [None]
  - Rash [None]
  - Pruritus [None]
  - Swelling [None]
  - Scratch [None]
  - Skin ulcer [None]
  - Haemorrhage [None]
  - Constipation [None]
  - Abdominal pain [None]
  - Migraine [None]
  - Screaming [None]
  - Crying [None]
  - Erectile dysfunction [None]
  - Frustration [None]
  - Hypersensitivity [None]
  - Pyrexia [None]
  - Cough [None]
  - Oropharyngeal pain [None]
  - Headache [None]
  - Feeling abnormal [None]
